FAERS Safety Report 7270596-3 (Version None)
Quarter: 2011Q1

REPORT INFORMATION
  Report Type: 
  Country: None (occurrence: None)
  Receive Date: 20110202
  Receipt Date: 20110126
  Transmission Date: 20110831
  Serious: Yes (Hospitalization)
  Sender: FDA-Public Use
  Company Number: A0817862A

PATIENT
  Sex: Male
  Weight: 94.1 kg

DRUGS (5)
  1. METFORMIN [Concomitant]
  2. DIOVAN [Concomitant]
  3. GLIPIZIDE [Concomitant]
  4. AVANDIA [Suspect]
     Dosage: 4MG PER DAY
     Route: 048
     Dates: start: 20040610, end: 20080517
  5. VYTORIN [Concomitant]

REACTIONS (2)
  - ANGINA UNSTABLE [None]
  - CORONARY ARTERY DISEASE [None]
